FAERS Safety Report 9218014 (Version 4)
Quarter: 2013Q4

REPORT INFORMATION
  Report Type: Report from Study
  Country: US (occurrence: US)
  Receive Date: 20130408
  Receipt Date: 20131007
  Transmission Date: 20140711
  Serious: Yes (Hospitalization)
  Sender: FDA-Public Use
  Company Number: PHEH2013US007887

PATIENT
  Age: 76 Year
  Sex: Male

DRUGS (10)
  1. TASIGNA [Suspect]
     Indication: CHRONIC MYELOID LEUKAEMIA
     Dosage: 300 MG, BID
     Route: 048
     Dates: start: 20130126, end: 20130129
  2. ANTIBIOTICS [Suspect]
     Indication: UPPER RESPIRATORY TRACT INFECTION
  3. METOPROLOL SUCCINATE [Concomitant]
     Dosage: 50 MG, QD
  4. LIPITOR [Concomitant]
  5. CARTIA [Concomitant]
     Dosage: 240 MG, QD
  6. PRADAXA [Concomitant]
     Dosage: 150 MG, BID
  7. PROTONIX [Concomitant]
     Dosage: 40 MG, QD
  8. VITAMIN D [Concomitant]
  9. GLUCOSAMINE [Concomitant]
  10. ASPIRIN [Concomitant]
     Dosage: 81 MG, DAILY

REACTIONS (12)
  - Pancreatitis acute [Recovered/Resolved]
  - Lipase increased [Recovered/Resolved]
  - Amylase increased [Recovered/Resolved]
  - Abdominal pain upper [Recovered/Resolved]
  - Atrial fibrillation [Recovered/Resolved]
  - Heart rate irregular [Recovered/Resolved]
  - Hyperhidrosis [Recovered/Resolved]
  - Blood pressure increased [Recovered/Resolved]
  - Nausea [Recovered/Resolved]
  - Asthenia [Recovered/Resolved]
  - Upper respiratory tract infection [Recovered/Resolved]
  - Blood bilirubin increased [Recovered/Resolved]
